FAERS Safety Report 8064725-1 (Version None)
Quarter: 2012Q1

REPORT INFORMATION
  Report Type: 
  Country: None (occurrence: None)
  Receive Date: 20120123
  Receipt Date: 20120111
  Transmission Date: 20120608
  Serious: Yes (Hospitalization, Other)
  Sender: FDA-Public Use
  Company Number: US-ELI_LILLY_AND_COMPANY-US201108001135

PATIENT
  Sex: Female

DRUGS (4)
  1. CYMBALTA [Concomitant]
  2. FORTEO [Suspect]
     Indication: OSTEOPOROSIS
     Dosage: 20 UG, QD
     Route: 065
     Dates: start: 20110619
  3. FORTEO [Suspect]
     Dosage: 20 UG, QD
     Route: 065
  4. GABAPENTIN [Concomitant]
     Indication: PAIN

REACTIONS (13)
  - BACK PAIN [None]
  - SUPERFICIAL INJURY OF EYE [None]
  - HERPES OPHTHALMIC [None]
  - PAIN [None]
  - ARTHRALGIA [None]
  - INJECTION SITE HAEMATOMA [None]
  - FALL [None]
  - ORAL HERPES [None]
  - ANKLE FRACTURE [None]
  - JOINT SWELLING [None]
  - SKIN TIGHTNESS [None]
  - COLON INJURY [None]
  - CONTUSION [None]
